FAERS Safety Report 14120623 (Version 1)
Quarter: 2017Q4

REPORT INFORMATION
  Report Type: Report from Study
  Country: NL (occurrence: NL)
  Receive Date: 20171024
  Receipt Date: 20171024
  Transmission Date: 20180321
  Serious: Yes (Other)
  Sender: FDA-Public Use
  Company Number: NL-MYLANLABS-2017M1066487

PATIENT
  Age: 60 Year
  Sex: Female

DRUGS (1)
  1. ACETAZOLAMIDE. [Suspect]
     Active Substance: ACETAZOLAMIDE
     Indication: NEPHROGENIC DIABETES INSIPIDUS
     Route: 065

REACTIONS (4)
  - Lethargy [Unknown]
  - Anxiety [Unknown]
  - Headache [Unknown]
  - Metabolic acidosis [Unknown]
